FAERS Safety Report 10186128 (Version 1)
Quarter: 2014Q2

REPORT INFORMATION
  Report Type: Spontaneous
  Country: US (occurrence: US)
  Receive Date: 20140521
  Receipt Date: 20140521
  Transmission Date: 20141212
  Serious: Yes (Other)
  Sender: FDA-Public Use
  Company Number: US-PFIZER INC-2014138779

PATIENT
  Age: 65 Year
  Sex: Male
  Weight: 154.2 kg

DRUGS (2)
  1. ZOLOFT [Suspect]
     Indication: MAJOR DEPRESSION
     Dosage: 100 MG, 1X/DAY
     Route: 048
     Dates: start: 2009
  2. NORTRIPTYLINE [Concomitant]
     Dosage: UNK

REACTIONS (4)
  - Obesity [Unknown]
  - Weight decreased [Unknown]
  - Drug ineffective [Unknown]
  - Depression [Unknown]
